FAERS Safety Report 15594540 (Version 1)
Quarter: 2018Q4

REPORT INFORMATION
  Report Type: Spontaneous
  Country: US (occurrence: US)
  Receive Date: 20181107
  Receipt Date: 20181107
  Transmission Date: 20190205
  Serious: Yes (Hospitalization)
  Sender: FDA-Public Use
  Company Number: US-OTSUKA-2018_015571

PATIENT
  Age: 50 Year
  Sex: Male

DRUGS (20)
  1. SODIUM FLUORIDE. [Concomitant]
     Active Substance: SODIUM FLUORIDE
     Indication: DENTAL CARE
     Dosage: UNK, QD
     Route: 065
  2. PROPOXYPHENE N/APAP [Concomitant]
     Active Substance: ACETAMINOPHEN\PROPOXYPHENE NAPSYLATE
     Indication: PAIN
     Dosage: 1 DF, UNK
     Route: 048
  3. FLUNISOLIDE. [Concomitant]
     Active Substance: FLUNISOLIDE
     Indication: NASAL DISORDER
     Dosage: 2 PUFFS (200D),BID (EACH NOSTRIL)
     Route: 065
  4. ABILIFY [Suspect]
     Active Substance: ARIPIPRAZOLE
     Indication: SCHIZOPHRENIA
     Dosage: 30 MG, QD (AT BED TIME)
     Route: 048
  5. MULTIVITS W/MINERALS [Concomitant]
     Indication: PRODUCT USED FOR UNKNOWN INDICATION
     Dosage: 1 DF, QD
     Route: 048
  6. DIVALPROEX [Concomitant]
     Active Substance: DIVALPROEX SODIUM
     Indication: AFFECTIVE DISORDER
  7. VITAMIN E [Concomitant]
     Active Substance: .ALPHA.-TOCOPHEROL
     Indication: SUPPLEMENTATION THERAPY
     Dosage: 1 DF, QD
     Route: 048
  8. ACETAMINOPHEN. [Concomitant]
     Active Substance: ACETAMINOPHEN
     Indication: PAIN
     Dosage: 2 DF, TID (AS NEEDED)
     Route: 048
  9. MONTELUKAST [Concomitant]
     Active Substance: MONTELUKAST SODIUM
     Indication: DYSPNOEA
     Dosage: 1 DF, QD (EVERRY EVENING)
     Route: 048
  10. VENLAFAXINE HCL [Concomitant]
     Active Substance: VENLAFAXINE HYDROCHLORIDE
     Indication: HEADACHE
     Dosage: 1 DF, BID
     Route: 048
  11. ABILIFY [Suspect]
     Active Substance: ARIPIPRAZOLE
     Indication: AFFECTIVE DISORDER
  12. RISPERIDONE. [Concomitant]
     Active Substance: RISPERIDONE
     Indication: PRODUCT USED FOR UNKNOWN INDICATION
     Dosage: 1 DF, QD (AT BED TIME)
     Route: 048
  13. LORATADINE. [Concomitant]
     Active Substance: LORATADINE
     Indication: HYPERSENSITIVITY
     Dosage: 1 DF, QD
     Route: 048
  14. SIMVASTATIN. [Concomitant]
     Active Substance: SIMVASTATIN
     Indication: HYPERSENSITIVITY
     Dosage: UNK
     Route: 065
  15. ASCORBIC ACID. [Concomitant]
     Active Substance: ASCORBIC ACID
     Indication: VITAMIN SUPPLEMENTATION
     Dosage: 1 DF, QD
     Route: 048
  16. CALCIUM + VIT D [Concomitant]
     Active Substance: CALCIUM\VITAMIN D
     Indication: MINERAL SUPPLEMENTATION
     Dosage: 600MG/200 IU, BID
     Route: 048
  17. DIVALPROEX [Concomitant]
     Active Substance: DIVALPROEX SODIUM
     Indication: SEIZURE
     Dosage: 3 DF, QD (AT BED TIME)
     Route: 048
  18. ABILIFY [Suspect]
     Active Substance: ARIPIPRAZOLE
     Indication: BIPOLAR DISORDER
     Dosage: UNK, QD (15MG - 30MG)
     Route: 065
     Dates: start: 200904, end: 2018
  19. ALBUTEROL. [Concomitant]
     Active Substance: ALBUTEROL
     Indication: PRODUCT USED FOR UNKNOWN INDICATION
     Dosage: UNK (2 PUFFS BY INHALATION EVERY 6HRS AS NEEDED)
     Route: 065
  20. BUDESONIDE W/FORMOTEROL [Concomitant]
     Active Substance: BUDESONIDE\FORMOTEROL
     Indication: DYSPNOEA
     Dosage: 160MG/4.5MCG, BID (2PUFFFS BY INHALATION, EVERY MORNING AND EVENING)
     Route: 065

REACTIONS (25)
  - Hypocalcaemia [Unknown]
  - Acute kidney injury [Unknown]
  - Pneumonia [Recovered/Resolved]
  - Hyponatraemia [Unknown]
  - Economic problem [Unknown]
  - Crohn^s disease [Recovering/Resolving]
  - Anaemia [Unknown]
  - Bone marrow disorder [Unknown]
  - Renal cyst [Unknown]
  - Product use in unapproved indication [Unknown]
  - Anal abscess [Unknown]
  - Perineal injury [Unknown]
  - Divorced [Unknown]
  - Sepsis [Unknown]
  - Condition aggravated [Unknown]
  - Gambling disorder [Recovering/Resolving]
  - Hypokalaemia [Unknown]
  - Asthenia [Unknown]
  - Pseudomembranous colitis [Unknown]
  - Diarrhoea [Unknown]
  - Haemorrhoids [Recovering/Resolving]
  - Generalised oedema [Recovering/Resolving]
  - Leukocytosis [Recovering/Resolving]
  - Oedema peripheral [Recovered/Resolved]
  - Pyrexia [Unknown]

NARRATIVE: CASE EVENT DATE: 201307
